FAERS Safety Report 20515075 (Version 3)
Quarter: 2023Q1

REPORT INFORMATION
  Report Type: Report from Study
  Country: US (occurrence: US)
  Receive Date: 20220224
  Receipt Date: 20230329
  Transmission Date: 20230418
  Serious: No
  Sender: FDA-Public Use
  Company Number: US-KYOWAKIRIN-2022BKK001918

PATIENT

DRUGS (6)
  1. CRYSVITA [Suspect]
     Active Substance: BUROSUMAB-TWZA
     Indication: Hereditary hypophosphataemic rickets
     Dosage: 10 MG (STRENGTH 10 MG AND 30MG COMBINED TO ACHIEVE DOSE OF 70MG WHICH WAS INJECTED INTO ONE ARM), ON
     Route: 065
     Dates: start: 20211231, end: 20211231
  2. CRYSVITA [Suspect]
     Active Substance: BUROSUMAB-TWZA
     Indication: Hereditary hypophosphataemic rickets
     Dosage: 10MG (STRENGTH 10MG AND 30MG COMBINED TO ACHIEVE DOSE OF 70MG WHICH WAS INJECTED AS 30MG AND 10MG IN
     Route: 065
     Dates: start: 20220121
  3. CRYSVITA [Suspect]
     Active Substance: BUROSUMAB-TWZA
     Dosage: 70 MG, 1X/4 WEEKS
     Route: 058
     Dates: start: 20220407
  4. CRYSVITA [Suspect]
     Active Substance: BUROSUMAB-TWZA
     Indication: Hereditary hypophosphataemic rickets
     Dosage: 60 MG (STRENGTH 30 MG AND 10MG COMBINED TO ACHIEVE DOSE OF 70MG WHICH WAS INJECTED INTO ONE ARM), ON
     Route: 065
     Dates: start: 20211231, end: 20211231
  5. CRYSVITA [Suspect]
     Active Substance: BUROSUMAB-TWZA
     Indication: Hereditary hypophosphataemic rickets
     Dosage: 60MG (STRENGTH 30MG AND 10MG COMBINED TO ACHIEVE DOSE OF 70MG WHICH WAS INJECTED AS 30MG AND 10MG IN
     Route: 065
     Dates: start: 20220121
  6. CRYSVITA [Suspect]
     Active Substance: BUROSUMAB-TWZA
     Dosage: 70 MG, 1X/4 WEEKS
     Route: 058
     Dates: start: 20220407

REACTIONS (5)
  - Injection site hypersensitivity [Unknown]
  - Injection site rash [Unknown]
  - Off label use [Unknown]
  - Lack of injection site rotation [Not Recovered/Not Resolved]
  - Overdose [Unknown]

NARRATIVE: CASE EVENT DATE: 20211231
